FAERS Safety Report 21877313 (Version 1)
Quarter: 2023Q1

REPORT INFORMATION
  Report Type: Spontaneous
  Country: US (occurrence: None)
  Receive Date: 20230116
  Receipt Date: 20230116
  Transmission Date: 20230417
  Serious: No
  Sender: FDA-Public Use
  Company Number: None

PATIENT
  Age: 79 Year
  Sex: Male

DRUGS (3)
  1. AMBRISENTAN [Suspect]
     Active Substance: AMBRISENTAN
     Indication: Heritable pulmonary arterial hypertension
     Dosage: 10MG QD ORAL
     Route: 048
     Dates: start: 20170224
  2. AMBRISENTAN [Suspect]
     Active Substance: AMBRISENTAN
     Indication: Pulmonary arterial hypertension
  3. TADALAFIL [Concomitant]
     Active Substance: TADALAFIL

REACTIONS (2)
  - Fatigue [None]
  - Supraventricular tachycardia [None]

NARRATIVE: CASE EVENT DATE: 20221219
